FAERS Safety Report 15774658 (Version 1)
Quarter: 2018Q4

REPORT INFORMATION
  Report Type: Spontaneous
  Country: NL (occurrence: NL)
  Receive Date: 20181230
  Receipt Date: 20181230
  Transmission Date: 20190205
  Serious: Yes (Other)
  Sender: FDA-Public Use
  Company Number: NL-009507513-1812NLD011478

PATIENT
  Sex: Female

DRUGS (2)
  1. THYRAX [Concomitant]
     Active Substance: LEVOTHYROXINE
     Dosage: TABLET
  2. NASONEX [Suspect]
     Active Substance: MOMETASONE FUROATE
     Dosage: 2 DOSES PER NOSTRIL PER DAY.
     Route: 045
     Dates: start: 2008, end: 2018

REACTIONS (4)
  - Varicella [Unknown]
  - Drug effect decreased [Unknown]
  - Stress [Unknown]
  - Cerebral infarction [Unknown]

NARRATIVE: CASE EVENT DATE: 2009
